FAERS Safety Report 10485716 (Version 1)
Quarter: 2014Q4

REPORT INFORMATION
  Report Type: Other
  Country: GB (occurrence: GB)
  Receive Date: 20141001
  Receipt Date: 20141001
  Transmission Date: 20150528
  Serious: Yes (Other)
  Sender: FDA-Public Use
  Company Number: GB-LUPIN PHARMACEUTICALS INC.-E2B_00002521

PATIENT
  Age: 58 Year
  Sex: Female
  Weight: 60 kg

DRUGS (1)
  1. LISINOPRIL. [Suspect]
     Active Substance: LISINOPRIL
     Indication: HYPERTENSION
     Route: 048
     Dates: start: 20080901, end: 20140901

REACTIONS (3)
  - Raynaud^s phenomenon [Recovered/Resolved]
  - Peripheral swelling [Recovered/Resolved]
  - Burning feet syndrome [Recovered/Resolved]

NARRATIVE: CASE EVENT DATE: 20081203
